FAERS Safety Report 6561135-0 (Version None)
Quarter: 2010Q1

REPORT INFORMATION
  Report Type: 
  Country: None (occurrence: None)
  Receive Date: 20100130
  Receipt Date: 20091001
  Transmission Date: 20100710
  Serious: No
  Sender: FDA-Public Use
  Company Number: US-ABBOTT-09P-163-0600822-00

PATIENT
  Sex: Female
  Weight: 109.87 kg

DRUGS (8)
  1. HUMIRA [Suspect]
     Indication: RHEUMATOID ARTHRITIS
     Dates: start: 20050101, end: 20090910
  2. CELEBREX [Concomitant]
     Indication: RHEUMATOID ARTHRITIS
  3. CELEBREX [Concomitant]
     Indication: OSTEOARTHRITIS
  4. PRILOSEC [Concomitant]
     Indication: DYSPEPSIA
  5. ADVAIR DISKUS 100/50 [Concomitant]
     Indication: DYSPNOEA
  6. PROAIR HFA [Concomitant]
     Indication: DYSPNOEA
  7. VICODIN [Concomitant]
     Indication: PAIN
  8. XANAX [Concomitant]
     Indication: ANXIETY

REACTIONS (2)
  - TOOTH LOSS [None]
  - WEIGHT INCREASED [None]
